FAERS Safety Report 19937623 (Version 2)
Quarter: 2022Q1

REPORT INFORMATION
  Report Type: Report from Study
  Country: PR (occurrence: PR)
  Receive Date: 20211011
  Receipt Date: 20220207
  Transmission Date: 20220424
  Serious: Yes (Other)
  Sender: FDA-Public Use
  Company Number: PR-ABBVIE-21K-131-4112946-00

PATIENT
  Sex: Male
  Weight: 95.340 kg

DRUGS (8)
  1. HUMIRA [Suspect]
     Active Substance: ADALIMUMAB
     Indication: Psoriatic arthropathy
     Route: 058
     Dates: start: 20160513, end: 2018
  2. HUMIRA [Suspect]
     Active Substance: ADALIMUMAB
     Dosage: 40MG/0.8ML
     Route: 058
     Dates: end: 20190225
  3. HUMIRA [Suspect]
     Active Substance: ADALIMUMAB
     Dosage: 40MG/0.4ML
     Route: 058
     Dates: start: 20190506
  4. HUMIRA [Suspect]
     Active Substance: ADALIMUMAB
     Dosage: 40MG/0.4ML
     Route: 058
     Dates: start: 202003
  5. HUMIRA [Suspect]
     Active Substance: ADALIMUMAB
     Indication: Psoriatic arthropathy
     Dosage: 40MG/0.8ML
     Route: 058
     Dates: start: 20160520
  6. TOZINAMERAN [Concomitant]
     Active Substance: TOZINAMERAN
     Indication: COVID-19 immunisation
     Dosage: PFIZER 1ST DOSE
     Route: 030
     Dates: start: 20210324, end: 20210324
  7. TOZINAMERAN [Concomitant]
     Active Substance: TOZINAMERAN
     Dosage: PFIZER 2ND DOSE
     Route: 030
     Dates: start: 20210413, end: 20210413
  8. TOZINAMERAN [Concomitant]
     Active Substance: TOZINAMERAN
     Dosage: PFIZER 3RD DOSE
     Route: 030
     Dates: start: 20210830, end: 20210830

REACTIONS (5)
  - Spinal cord compression [Not Recovered/Not Resolved]
  - Exostosis [Not Recovered/Not Resolved]
  - Dysphonia [Not Recovered/Not Resolved]
  - Dysphagia [Not Recovered/Not Resolved]
  - Post procedural complication [Unknown]

NARRATIVE: CASE EVENT DATE: 20220101
